FAERS Safety Report 13855348 (Version 1)
Quarter: 2017Q3

REPORT INFORMATION
  Report Type: Spontaneous
  Country: US (occurrence: US)
  Receive Date: 20170810
  Receipt Date: 20170810
  Transmission Date: 20171127
  Serious: No
  Sender: FDA-Public Use
  Company Number: US-VIFOR (INTERNATIONAL) INC.-VIT-2017-05277

PATIENT
  Age: 75 Year
  Sex: Female
  Weight: 83.99 kg

DRUGS (28)
  1. AMLODIPINE [Concomitant]
     Active Substance: AMLODIPINE BESYLATE
  2. CLOTRIM [Concomitant]
  3. FENTANYL. [Concomitant]
     Active Substance: FENTANYL
  4. CALCITRIOL. [Concomitant]
     Active Substance: CALCITRIOL
  5. HYDRALAZINE [Concomitant]
     Active Substance: HYDRALAZINE HYDROCHLORIDE
  6. VELTASSA [Suspect]
     Active Substance: PATIROMER
     Indication: HYPERKALAEMIA
     Route: 048
     Dates: start: 2017
  7. KRYSTEXXA [Concomitant]
     Active Substance: PEGLOTICASE
     Indication: GOUT
     Route: 042
  8. TETRACYCLINE [Concomitant]
     Active Substance: TETRACYCLINE
  9. DOXYCYCLINE HYDROCHLORIDE [Concomitant]
     Active Substance: DOXYCYCLINE HYDROCHLORIDE
  10. RANITIDINE. [Concomitant]
     Active Substance: RANITIDINE
  11. BUMETANIDE. [Concomitant]
     Active Substance: BUMETANIDE
  12. BYSTOLIC [Concomitant]
     Active Substance: NEBIVOLOL HYDROCHLORIDE
  13. ZEMPLAR [Concomitant]
     Active Substance: PARICALCITOL
  14. LOSARTAN. [Concomitant]
     Active Substance: LOSARTAN
  15. ALLOPURINOL. [Concomitant]
     Active Substance: ALLOPURINOL
  16. METOLAZONE. [Concomitant]
     Active Substance: METOLAZONE
  17. FOLIC ACID. [Concomitant]
     Active Substance: FOLIC ACID
  18. SODIUM POLYSTYRENE SULFONATE. [Concomitant]
     Active Substance: SODIUM POLYSTYRENE SULFONATE
  19. VELTASSA [Suspect]
     Active Substance: PATIROMER
     Route: 048
     Dates: start: 20170510
  20. FLUTICASONE. [Concomitant]
     Active Substance: FLUTICASONE
  21. CLONIDINE. [Concomitant]
     Active Substance: CLONIDINE
  22. VOLTAREN [Concomitant]
     Active Substance: DICLOFENAC SODIUM
  23. VELTASSA [Suspect]
     Active Substance: PATIROMER
     Route: 048
     Dates: start: 20161222
  24. METRONIDAZOLE. [Concomitant]
     Active Substance: METRONIDAZOLE
  25. ONDANSETRON [Concomitant]
     Active Substance: ONDANSETRON
  26. CLOTRIMAZOLE. [Concomitant]
     Active Substance: CLOTRIMAZOLE
  27. CYANOCOBALAMIN. [Concomitant]
     Active Substance: CYANOCOBALAMIN
  28. MINOCYCLINE [Concomitant]
     Active Substance: MINOCYCLINE\MINOCYCLINE HYDROCHLORIDE

REACTIONS (4)
  - Blood creatinine increased [Not Recovered/Not Resolved]
  - Red blood cell count decreased [Not Recovered/Not Resolved]
  - Blood glucose increased [Not Recovered/Not Resolved]
  - Product quality issue [Unknown]

NARRATIVE: CASE EVENT DATE: 2017
